FAERS Safety Report 10141900 (Version 5)
Quarter: 2014Q2

REPORT INFORMATION
  Report Type: Spontaneous
  Country: US (occurrence: US)
  Receive Date: 20140429
  Receipt Date: 20140624
  Transmission Date: 20141212
  Serious: Yes (Hospitalization, Other)
  Sender: FDA-Public Use
  Company Number: PHEH2014US008049

PATIENT
  Age: 61 Year
  Sex: Female
  Weight: 64.86 kg

DRUGS (3)
  1. ZOMETA [Suspect]
     Indication: OSTEOPOROSIS
     Dosage: 4 MG, QMO
     Route: 042
  2. AREDIA [Suspect]
     Indication: OSTEOPOROSIS
     Dosage: 90 MG, QMO
     Route: 042
  3. AREDIA [Suspect]
     Indication: MULTIPLE FRACTURES
     Dosage: 60 MG, QMO
     Route: 042

REACTIONS (49)
  - Osteonecrosis of jaw [Unknown]
  - Pain [Unknown]
  - Cellulitis [Unknown]
  - Cushingoid [Unknown]
  - Pleurisy [Unknown]
  - Nasal discomfort [Unknown]
  - Spider naevus [Unknown]
  - Glossitis [Unknown]
  - Gout [Unknown]
  - Faecal incontinence [Unknown]
  - Faeces discoloured [Unknown]
  - Peptic ulcer [Unknown]
  - Hiatus hernia [Unknown]
  - Gastrointestinal infection [Unknown]
  - Breast mass [Unknown]
  - Impaired healing [Unknown]
  - Erythema [Unknown]
  - Wound [Unknown]
  - Gait disturbance [Unknown]
  - Forearm fracture [Unknown]
  - Wrist fracture [Unknown]
  - Dyspnoea exertional [Unknown]
  - Diabetic foot [Unknown]
  - Foot deformity [Unknown]
  - Swelling [Unknown]
  - Eczema [Unknown]
  - Postoperative abscess [Unknown]
  - Abdominal abscess [Unknown]
  - Peripheral nerve lesion [Unknown]
  - Urinary incontinence [Unknown]
  - Macular degeneration [Unknown]
  - Memory impairment [Unknown]
  - Intervertebral disc degeneration [Unknown]
  - Bone erosion [Unknown]
  - Vertebral foraminal stenosis [Unknown]
  - Nasal mucosal disorder [Unknown]
  - Chest pain [Unknown]
  - Decreased appetite [Unknown]
  - Night sweats [Unknown]
  - Weight increased [Unknown]
  - Lethargy [Unknown]
  - Thirst [Unknown]
  - Scar [Unknown]
  - Musculoskeletal stiffness [Unknown]
  - Groin pain [Unknown]
  - Agitation [Unknown]
  - Rales [Unknown]
  - Polydipsia [Unknown]
  - Irritability [Unknown]
